FAERS Safety Report 5305839-6 (Version None)
Quarter: 2007Q2

REPORT INFORMATION
  Report Type: 
  Country: None (occurrence: None)
  Receive Date: 20070424
  Receipt Date: 20070418
  Transmission Date: 20071010
  Serious: Yes (Hospitalization)
  Sender: FDA-Public Use
  Company Number: FRWYE496419APR07

PATIENT
  Age: 5 Year
  Sex: Male
  Weight: 26 kg

DRUGS (2)
  1. ADVIL [Suspect]
     Indication: PYREXIA
     Route: 048
     Dates: start: 20070224, end: 20070228
  2. DOLIPRANE [Concomitant]
     Dosage: TOTAL DAILY DOSE : 1.5MG
     Route: 048
     Dates: start: 20070224, end: 20070228

REACTIONS (2)
  - LUNG DISORDER [None]
  - PLEURAL EFFUSION [None]
